FAERS Safety Report 25307381 (Version 1)
Quarter: 2025Q2

REPORT INFORMATION
  Report Type: Spontaneous
  Country: US (occurrence: US)
  Receive Date: 20250513
  Receipt Date: 20250513
  Transmission Date: 20250716
  Serious: No
  Sender: UPSHER SMITH LABORATORIES
  Company Number: US-UPSHER-SMITH LABORATORIES, LLC-20240700040

PATIENT
  Sex: Male

DRUGS (5)
  1. AMIODARONE HYDROCHLORIDE [Suspect]
     Active Substance: AMIODARONE HYDROCHLORIDE
     Indication: Product used for unknown indication
     Route: 065
     Dates: start: 2024, end: 20240709
  2. ORGOVYX [Suspect]
     Active Substance: RELUGOLIX
     Indication: Prostate cancer
     Route: 048
     Dates: start: 20240501, end: 20240501
  3. ORGOVYX [Suspect]
     Active Substance: RELUGOLIX
     Route: 048
     Dates: start: 20240502
  4. NUBEQA [Concomitant]
     Active Substance: DAROLUTAMIDE
     Indication: Product used for unknown indication
     Route: 065
     Dates: start: 20240501
  5. XTANDI [Concomitant]
     Active Substance: ENZALUTAMIDE
     Indication: Product used for unknown indication
     Route: 065

REACTIONS (7)
  - Vertigo [Not Recovered/Not Resolved]
  - Feeling abnormal [Recovering/Resolving]
  - Glucose tolerance impaired [Unknown]
  - Chromaturia [Unknown]
  - Asthenia [Recovering/Resolving]
  - Dizziness [Not Recovered/Not Resolved]
  - Fatigue [Not Recovered/Not Resolved]

NARRATIVE: CASE EVENT DATE: 20240101
